FAERS Safety Report 8596363-6 (Version None)
Quarter: 2012Q3

REPORT INFORMATION
  Report Type: 
  Country: None (occurrence: None)
  Receive Date: 20120815
  Receipt Date: 20120813
  Transmission Date: 20120928
  Serious: Yes (Death)
  Sender: FDA-Public Use
  Company Number: BR-B.I. PHARMACEUTICALS,INC./RIDGEFIELD-2012-BR-00926BR

PATIENT
  Age: 85 Year
  Sex: Male

DRUGS (2)
  1. MEDICATIONS NOT FURTHER SPECIFIED [Concomitant]
  2. TRAYENTA [Suspect]
     Indication: TYPE 2 DIABETES MELLITUS
     Dosage: 5 MG
     Route: 048
     Dates: start: 20120301

REACTIONS (1)
  - RENAL FAILURE [None]
